FAERS Safety Report 7283311-4 (Version None)
Quarter: 2011Q1

REPORT INFORMATION
  Report Type: 
  Country: None (occurrence: None)
  Receive Date: 20110204
  Receipt Date: 20110204
  Transmission Date: 20110831
  Serious: Yes (Hospitalization)
  Sender: FDA-Public Use
  Company Number: None

PATIENT
  Age: 39 Year
  Sex: Male
  Weight: 95.5 kg

DRUGS (1)
  1. INDOMETHACIN [Suspect]
     Indication: SCLERITIS
     Dosage: 75 MG 2 X DAILY ORAL PILLS
     Route: 048
     Dates: start: 20101113, end: 20101117

REACTIONS (8)
  - DIZZINESS [None]
  - FEELING DRUNK [None]
  - CONFUSIONAL STATE [None]
  - PARALYSIS [None]
  - BLOOD GLUCOSE ABNORMAL [None]
  - FATIGUE [None]
  - HYPOGLYCAEMIA [None]
  - CONVULSION [None]
